FAERS Safety Report 23880679 (Version 1)
Quarter: 2024Q2

REPORT INFORMATION
  Report Type: Spontaneous
  Country: NZ (occurrence: NZ)
  Receive Date: 20240521
  Receipt Date: 20240521
  Transmission Date: 20240716
  Serious: Yes (Other)
  Sender: FDA-Public Use
  Company Number: NZ-002147023-NVSC2023NZ177246

PATIENT
  Sex: Female

DRUGS (3)
  1. COSENTYX [Suspect]
     Active Substance: SECUKINUMAB
     Indication: Psoriatic arthropathy
     Dosage: 150 MG, QMO
     Route: 058
     Dates: start: 20230810
  2. COSENTYX [Suspect]
     Active Substance: SECUKINUMAB
     Dosage: 300 MG, QMO
     Route: 058
     Dates: start: 20230810
  3. METHOTREXATE [Suspect]
     Active Substance: METHOTREXATE
     Indication: Product used for unknown indication
     Dosage: UNK
     Route: 058

REACTIONS (14)
  - Gastrointestinal disorder [Unknown]
  - Anxiety [Unknown]
  - Polymenorrhoea [Unknown]
  - Injection site pain [Unknown]
  - Injection site bruising [Unknown]
  - Injection site mass [Unknown]
  - Throat irritation [Unknown]
  - Joint swelling [Unknown]
  - Abdominal discomfort [Unknown]
  - Nausea [Unknown]
  - Cough [Unknown]
  - Abdominal pain [Unknown]
  - Malaise [Unknown]
  - Drug ineffective [Unknown]
